FAERS Safety Report 10208440 (Version 1)
Quarter: 2014Q2

REPORT INFORMATION
  Report Type: Spontaneous
  Country: US (occurrence: US)
  Receive Date: 20140530
  Receipt Date: 20140530
  Transmission Date: 20141212
  Serious: Yes (Other)
  Sender: FDA-Public Use
  Company Number: US-GLAXOSMITHKLINE-A1074353A

PATIENT
  Age: 48 Year
  Sex: Female

DRUGS (5)
  1. VENTOLIN [Suspect]
     Indication: ASTHMA
     Dosage: 2PUFF AS REQUIRED
     Route: 055
  2. SYMBICORT [Concomitant]
  3. SINGULAIR [Concomitant]
  4. IRON [Concomitant]
  5. VITAMIN C [Concomitant]

REACTIONS (8)
  - Pneumonia [Unknown]
  - Dysphonia [Recovered/Resolved]
  - Bronchitis [Unknown]
  - Nasopharyngitis [Recovered/Resolved]
  - Rhinorrhoea [Recovered/Resolved]
  - Eye pruritus [Recovered/Resolved]
  - Chest discomfort [Recovered/Resolved]
  - Drug administration error [Unknown]
